FAERS Safety Report 20169612 (Version 3)
Quarter: 2022Q2

REPORT INFORMATION
  Report Type: Report from Study
  Country: CA (occurrence: CA)
  Receive Date: 20211210
  Receipt Date: 20220421
  Transmission Date: 20220721
  Serious: Yes (Other)
  Sender: FDA-Public Use
  Company Number: CA-BAUSCH-BL-2021-033400

PATIENT

DRUGS (16)
  1. CONTRAVE [Suspect]
     Active Substance: BUPROPION HYDROCHLORIDE\NALTREXONE HYDROCHLORIDE
     Indication: Weight control
     Dosage: 90/8 MILLIGRAM 1 TABLET IN MORNING
     Route: 048
     Dates: start: 20210912, end: 20210918
  2. CONTRAVE [Suspect]
     Active Substance: BUPROPION HYDROCHLORIDE\NALTREXONE HYDROCHLORIDE
     Dosage: 90/8 MILLIGRAM 1 TABLET IN MORNING, 1 TABLET IN EVENING
     Route: 048
     Dates: start: 20210919, end: 20210925
  3. CONTRAVE [Suspect]
     Active Substance: BUPROPION HYDROCHLORIDE\NALTREXONE HYDROCHLORIDE
     Dosage: 90/8 MILLIGRAM, 2 TABLETS IN MORNING, 1 TABLET IN EVENING
     Route: 048
     Dates: start: 20210926, end: 20211002
  4. CONTRAVE [Suspect]
     Active Substance: BUPROPION HYDROCHLORIDE\NALTREXONE HYDROCHLORIDE
     Dosage: 90/8 MILLIGRAM 2 TABLETS IN MORNING, 2 TABLET IN EVENING
     Route: 048
     Dates: start: 20211003, end: 20220327
  5. CONTRAVE [Suspect]
     Active Substance: BUPROPION HYDROCHLORIDE\NALTREXONE HYDROCHLORIDE
     Dosage: 90/8 MILLIGRAM 1 TABLET IN MORNING, 1 TABLET IN EVENING (REDUCED)
     Route: 048
     Dates: start: 20220328, end: 20220331
  6. CONTRAVE [Suspect]
     Active Substance: BUPROPION HYDROCHLORIDE\NALTREXONE HYDROCHLORIDE
     Dosage: 90/8 MILLIGRAM 2 TABLETS IN MORNING, 2 TABLET IN EVENING
     Route: 048
     Dates: start: 20220401
  7. CHOLECALCIFEROL [Concomitant]
     Active Substance: CHOLECALCIFEROL
     Indication: Metabolic surgery
     Dosage: 1 DOSAGE FORMS, 1 IN 24 HR
     Route: 048
  8. CYANOCOBALAMIN [Concomitant]
     Active Substance: CYANOCOBALAMIN
     Indication: Metabolic surgery
     Dosage: 1 DOSAGE FORMS, 1 IN 24 HR
     Route: 048
  9. ALEVE [Concomitant]
     Active Substance: NAPROXEN SODIUM
     Indication: Arthritis
     Dosage: 2 DOSAGE FORMS, 1 IN 24 HR
     Route: 048
  10. ADVIL [Concomitant]
     Active Substance: IBUPROFEN
     Indication: Arthritis
     Dosage: AS NEEDED (200 MG)
     Route: 048
  11. KIRKLAND SIGNATURE ACETAMINOPHEN [Concomitant]
     Indication: Arthritis
     Dosage: AS NEEDED
     Route: 048
  12. TRAZODONE [Concomitant]
     Active Substance: TRAZODONE HYDROCHLORIDE
     Indication: Sleep disorder
     Dosage: AS NEEDED
     Route: 048
  13. CALCIUM\VITAMIN D [Concomitant]
     Active Substance: CALCIUM\VITAMIN D
     Indication: Metabolic surgery
     Dosage: 1 DOSAGE FORMS, 1 IN 24 HR
     Route: 048
  14. SYMBICORT [Concomitant]
     Active Substance: BUDESONIDE\FORMOTEROL FUMARATE DIHYDRATE
     Indication: Asthma
     Dosage: AS NEEDED (1 IN 24 HR) (ROUTE: AEROSOL)
     Route: 050
  15. VITAMINS [Concomitant]
     Active Substance: VITAMINS
     Indication: Metabolic surgery
     Dosage: 1 DOSAGE FORMS, 1 IN 24 HR
     Route: 048
  16. PERINDOPRIL ERBUMINE [Concomitant]
     Active Substance: PERINDOPRIL ERBUMINE
     Indication: Hypertension
     Dosage: 2 MG,1 IN 1 D
     Route: 048
     Dates: start: 20211105

REACTIONS (13)
  - Hypotension [Recovered/Resolved]
  - Umbilical hernia [Not Recovered/Not Resolved]
  - Condition aggravated [Not Recovered/Not Resolved]
  - Plantar fasciitis [Recovering/Resolving]
  - Disease recurrence [Recovering/Resolving]
  - Ageusia [Not Recovered/Not Resolved]
  - Polydipsia [Unknown]
  - Peripheral swelling [Recovered/Resolved]
  - Dry mouth [Not Recovered/Not Resolved]
  - Diarrhoea [Recovered/Resolved]
  - Nausea [Not Recovered/Not Resolved]
  - Constipation [Not Recovered/Not Resolved]
  - Intentional product use issue [Unknown]

NARRATIVE: CASE EVENT DATE: 20210101
